FAERS Safety Report 8598754-6 (Version None)
Quarter: 2012Q3

REPORT INFORMATION
  Report Type: 
  Country: None (occurrence: None)
  Receive Date: 20120803
  Receipt Date: 20120724
  Transmission Date: 20120928
  Serious: Yes (Hospitalization)
  Sender: FDA-Public Use
  Company Number: 2010003567

PATIENT
  Age: 81 Year
  Sex: Female

DRUGS (2)
  1. TARCEVA [Suspect]
     Indication: PANCREATIC CARCINOMA
     Dosage: 100 MG, UID/QD, ORAL; 100 MG, UID/QD, ORAL
     Route: 048
     Dates: start: 20100818, end: 20120619
  2. TARCEVA [Suspect]
     Indication: PANCREATIC CARCINOMA
     Dosage: 100 MG, UID/QD, ORAL; 100 MG, UID/QD, ORAL
     Route: 048
     Dates: start: 20120704

REACTIONS (5)
  - NAUSEA [None]
  - VASCULAR STENOSIS [None]
  - SUPERIOR VENA CAVAL STENOSIS [None]
  - RASH [None]
  - VOMITING [None]
